FAERS Safety Report 6715385-0 (Version None)
Quarter: 2010Q2

REPORT INFORMATION
  Report Type: 
  Country: None (occurrence: None)
  Receive Date: 20100426
  Receipt Date: 20100226
  Transmission Date: 20101027
  Serious: Yes (Hospitalization)
  Sender: FDA-Public Use
  Company Number: 2010BI004182

PATIENT
  Age: 43 Year
  Sex: Female

DRUGS (1)
  1. TYSABRI [Suspect]
     Indication: MULTIPLE SCLEROSIS
     Dosage: 300 MG;QM;IV
     Route: 042
     Dates: start: 20090924

REACTIONS (7)
  - CHEST PAIN [None]
  - CONTUSION [None]
  - FALL [None]
  - HERNIA [None]
  - JOINT SPRAIN [None]
  - MULTIPLE SCLEROSIS RELAPSE [None]
  - SMEAR CERVIX ABNORMAL [None]
